FAERS Safety Report 8581920 (Version 2)
Quarter: 2013Q2

REPORT INFORMATION
  Report Type: Spontaneous
  Country: US (occurrence: US)
  Receive Date: 20120528
  Receipt Date: 20130418
  Transmission Date: 20140414
  Serious: No
  Sender: FDA-Public Use
  Company Number: US-PFIZER INC-2012125828

PATIENT
  Age: 54 Year
  Sex: Female

DRUGS (5)
  1. CHANTIX [Suspect]
     Dosage: STARTER PACK AS DIRECTOR
  2. CHANTIX [Suspect]
     Dosage: 1 MG, 2X/DAY
  3. PAXIL [Concomitant]
     Dosage: UNK
  4. BUSPAR [Concomitant]
     Dosage: UNK
  5. ALPRAZOLAM [Concomitant]
     Dosage: UNK

REACTIONS (1)
  - Abnormal dreams [Unknown]
